FAERS Safety Report 6475311-9 (Version None)
Quarter: 2009Q4

REPORT INFORMATION
  Report Type: 
  Country: None (occurrence: None)
  Receive Date: 20091204
  Receipt Date: 20090415
  Transmission Date: 20100525
  Serious: Yes (Other)
  Sender: FDA-Public Use
  Company Number: JP-ELI_LILLY_AND_COMPANY-JP200904003252

PATIENT
  Age: 68 Year
  Sex: Female
  Weight: 62 kg

DRUGS (2)
  1. GEMZAR [Suspect]
     Indication: PANCREATIC NEUROENDOCRINE TUMOUR
     Route: 042
  2. INSULIN [Concomitant]
     Indication: DIABETES MELLITUS
     Dosage: 30 U, DAILY (1/D)
     Route: 065

REACTIONS (3)
  - DYSPNOEA [None]
  - INTERSTITIAL LUNG DISEASE [None]
  - PNEUMOCYSTIS JIROVECI PNEUMONIA [None]
